FAERS Safety Report 8531428-6 (Version None)
Quarter: 2012Q3

REPORT INFORMATION
  Report Type: 
  Country: None (occurrence: None)
  Receive Date: 20120723
  Receipt Date: 20120706
  Transmission Date: 20120928
  Serious: Yes (Hospitalization)
  Sender: FDA-Public Use
  Company Number: AU-MSD-2012SP019561

PATIENT

DRUGS (16)
  1. ALBUTEROL [Concomitant]
     Indication: PRODUCT USED FOR UNKNOWN INDICATION
     Dosage: UPDATE (12-APR-2012)
     Route: 065
     Dates: start: 19950101
  2. MK-9353 [Concomitant]
     Indication: PRODUCT USED FOR UNKNOWN INDICATION
     Dosage: UPDATE (12-APR-2012)
     Route: 065
     Dates: start: 20100101
  3. IMPLANON [Concomitant]
     Indication: PRODUCT USED FOR UNKNOWN INDICATION
     Dosage: UPDATE (12-APR-2012)
     Route: 065
     Dates: start: 20100101
  4. STUDY DRUG (UNSPECIFIED) [Suspect]
     Indication: HEPATITIS C
     Dosage: 200 MG, QD
     Route: 048
     Dates: start: 20120105, end: 20120327
  5. YASMIN [Concomitant]
     Indication: PRODUCT USED FOR UNKNOWN INDICATION
     Dosage: UPDATE (12-APR-2012)
     Route: 065
     Dates: start: 20111201
  6. GS-5885 [Suspect]
     Indication: HEPATITIS C
     Dosage: 30 MG, QD
     Route: 048
     Dates: start: 20120105, end: 20120327
  7. OMEGA-3 MARINE TRIGLYCERIDES [Concomitant]
     Indication: PRODUCT USED FOR UNKNOWN INDICATION
     Dosage: UPDATE (12-APR-2012) :  00931501/ (DOCOSAHEXANOIC ACID, EICOSAPENTAENOIC ACID)
     Route: 065
     Dates: start: 20100101
  8. FLUCONAZOLE [Concomitant]
     Indication: PRODUCT USED FOR UNKNOWN INDICATION
     Dosage: UPDATE (12-APR-2012)
     Route: 065
     Dates: start: 20120305, end: 20120305
  9. METOCLOPRAMIDE [Concomitant]
     Indication: PRODUCT USED FOR UNKNOWN INDICATION
     Dosage: UPDATE (12-APR-2012)
     Route: 065
     Dates: start: 20120314
  10. RIBAVIRIN [Suspect]
     Indication: HEPATITIS C
     Dosage: 1000 MG, QD
     Route: 048
     Dates: start: 20120105, end: 20120327
  11. PEGINTERFERON ALFA-2A [Suspect]
     Indication: HEPATITIS C
     Dosage: 180 A?G, QW
     Route: 058
     Dates: start: 20120105, end: 20120321
  12. PEGINTERFERON ALFA-2A [Suspect]
     Dosage: 135 A?G, QW
     Route: 058
     Dates: start: 20120322, end: 20120322
  13. METAMUCIL-2 [Concomitant]
     Indication: PRODUCT USED FOR UNKNOWN INDICATION
     Dosage: UPDATE (12-APR-2012)
     Route: 065
     Dates: start: 20120110
  14. PROCHLORPERAZINE [Concomitant]
     Indication: PRODUCT USED FOR UNKNOWN INDICATION
     Dosage: UPDATE (12-APR-2012)
     Route: 065
     Dates: start: 20120114
  15. LORAZEPAM [Concomitant]
     Indication: PRODUCT USED FOR UNKNOWN INDICATION
     Dosage: UPDATE (12-APR-2012)
     Route: 065
     Dates: start: 20120316
  16. IBUPROFEN [Concomitant]
     Indication: PRODUCT USED FOR UNKNOWN INDICATION
     Dosage: UPDATE (12-APR-2012)
     Route: 065
     Dates: start: 20120105

REACTIONS (2)
  - MENINGITIS [None]
  - NEUTROPENIA [None]
